FAERS Safety Report 20470845 (Version 6)
Quarter: 2022Q3

REPORT INFORMATION
  Report Type: Report from Study
  Country: US (occurrence: US)
  Receive Date: 20220214
  Receipt Date: 20220929
  Transmission Date: 20221027
  Serious: No
  Sender: FDA-Public Use
  Company Number: US-NOVARTISTESTPH-NVSC2022US029492

PATIENT
  Sex: Female

DRUGS (4)
  1. COSENTYX [Suspect]
     Active Substance: SECUKINUMAB
     Indication: Ankylosing spondylitis
     Dosage: 150 MG, QW
     Route: 058
  2. COSENTYX [Suspect]
     Active Substance: SECUKINUMAB
     Dosage: 150 MG, QMO
     Route: 058
  3. COSENTYX [Suspect]
     Active Substance: SECUKINUMAB
     Dosage: 300 MG, QMO (EVERY 4 WEEKS)
     Route: 058
  4. REMICADE [Concomitant]
     Active Substance: INFLIXIMAB
     Indication: Axial spondyloarthritis
     Dosage: UNK
     Route: 042
     Dates: end: 202111

REACTIONS (5)
  - COVID-19 [Recovered/Resolved]
  - Throat irritation [Unknown]
  - Pain [Unknown]
  - Back pain [Unknown]
  - Drug ineffective [Unknown]
